FAERS Safety Report 4327556-1 (Version None)
Quarter: 2004Q1

REPORT INFORMATION
  Report Type: 
  Country: None (occurrence: None)
  Receive Date: 20040325
  Receipt Date: 20040310
  Transmission Date: 20041129
  Serious: Yes (Life-Threatening)
  Sender: FDA-Public Use
  Company Number: DSA_24065_2004

PATIENT
  Age: 65 Year
  Sex: Female

DRUGS (4)
  1. ENALAPRIL MALEATE [Suspect]
     Indication: HYPERTENSION
     Dosage: 5 MG Q DAY PO
     Route: 048
  2. FLUOROURACIL [Suspect]
     Indication: HEPATIC NEOPLASM MALIGNANT
  3. ALLOPURINOL [Concomitant]
  4. FAMOTIDINE [Concomitant]

REACTIONS (1)
  - INTERSTITIAL LUNG DISEASE [None]
